FAERS Safety Report 16189738 (Version 1)
Quarter: 2019Q2

REPORT INFORMATION
  Report Type: Other
  Country: ES (occurrence: ES)
  Receive Date: 20190412
  Receipt Date: 20190412
  Transmission Date: 20190711
  Serious: Yes (Death, Other)
  Sender: FDA-Public Use
  Company Number: ES-ASTELLAS-2019US015672

PATIENT
  Age: 4 Year
  Sex: Male

DRUGS (2)
  1. CELLCEPT [Interacting]
     Active Substance: MYCOPHENOLATE MOFETIL\MYCOPHENOLATE MOFETIL HYDROCHLORIDE
     Indication: HEART TRANSPLANT
     Dosage: 360 MG, TWICE DAILY (EVERY 12 HOURS)
     Route: 048
     Dates: start: 20170707, end: 20171228
  2. MODIGRAF [Suspect]
     Active Substance: TACROLIMUS
     Indication: HEART TRANSPLANT
     Dosage: 3 MG, TWICE DAILY (EVERY 12 HOURS)
     Route: 048
     Dates: start: 20170710, end: 20171228

REACTIONS (2)
  - Drug interaction [Unknown]
  - Post transplant lymphoproliferative disorder [Fatal]

NARRATIVE: CASE EVENT DATE: 20171228
